FAERS Safety Report 7451346-4 (Version None)
Quarter: 2011Q2

REPORT INFORMATION
  Report Type: 
  Country: None (occurrence: None)
  Receive Date: 20110502
  Receipt Date: 20110331
  Transmission Date: 20111010
  Serious: Yes (Hospitalization, Other)
  Sender: FDA-Public Use
  Company Number: US-BAYER-200928545NA

PATIENT
  Age: 20 Year
  Sex: Female

DRUGS (4)
  1. AMOXICILLIN [Concomitant]
     Dosage: 500 MG, BID
  2. LORTAB PRN [Concomitant]
  3. LORTAB [Concomitant]
     Dosage: UNK UNK, PRN
  4. YAZ [Suspect]
     Indication: PRODUCT USED FOR UNKNOWN INDICATION
     Dosage: UNK
     Dates: start: 20070601, end: 20070731

REACTIONS (2)
  - PULMONARY EMBOLISM [None]
  - DEEP VEIN THROMBOSIS [None]
